FAERS Safety Report 5964774-0 (Version None)
Quarter: 2008Q4

REPORT INFORMATION
  Report Type: 
  Country: None (occurrence: None)
  Receive Date: 20081125
  Receipt Date: 20080225
  Transmission Date: 20090506
  Serious: No
  Sender: FDA-Public Use
  Company Number: US-BAYER-200810924BCC

PATIENT
  Age: 29 Year
  Sex: Male
  Weight: 84 kg

DRUGS (1)
  1. ALEVE [Suspect]
     Indication: TOOTHACHE
     Dosage: TOTAL DAILY DOSE: 880 MG  UNIT DOSE: 220 MG
     Dates: start: 20080225

REACTIONS (1)
  - FATIGUE [None]
